FAERS Safety Report 17675671 (Version 1)
Quarter: 2020Q2

REPORT INFORMATION
  Report Type: Spontaneous
  Country: DK (occurrence: DK)
  Receive Date: 20200416
  Receipt Date: 20200416
  Transmission Date: 20200714
  Serious: Yes (Other)
  Sender: FDA-Public Use
  Company Number: NVSC2020DK102041

PATIENT
  Age: 67 Year
  Sex: Male
  Weight: 104 kg

DRUGS (2)
  1. VOTRIENT [Suspect]
     Active Substance: PAZOPANIB HYDROCHLORIDE
     Indication: RENAL CELL CARCINOMA
     Dosage: 800 MG, QD
     Route: 048
     Dates: start: 20191101, end: 201912
  2. PRAMIPEXOLE ORION [Concomitant]
     Indication: PARKINSON^S DISEASE
     Dosage: 0.52 MG, QD
     Route: 048
     Dates: start: 20170411

REACTIONS (2)
  - Hepatic enzyme increased [Unknown]
  - Cheyne-Stokes respiration [Recovered/Resolved]

NARRATIVE: CASE EVENT DATE: 20191116
